FAERS Safety Report 10916067 (Version 1)
Quarter: 2015Q1

REPORT INFORMATION
  Report Type: Spontaneous
  Country: US (occurrence: None)
  Receive Date: 20150311
  Receipt Date: 20150311
  Transmission Date: 20150721
  Serious: Yes (Other)
  Sender: FDA-Public Use
  Company Number: None

PATIENT
  Age: 46 Year
  Sex: Female

DRUGS (4)
  1. PENTASA [Concomitant]
     Active Substance: MESALAMINE
  2. PREDNISONE. [Concomitant]
     Active Substance: PREDNISONE
  3. PROMETHAZINE [Concomitant]
     Active Substance: PROMETHAZINE\PROMETHAZINE HYDROCHLORIDE
  4. CIMZIA [Suspect]
     Active Substance: CERTOLIZUMAB PEGOL
     Indication: CROHN^S DISEASE
     Route: 058
     Dates: start: 20140916, end: 20150301

REACTIONS (7)
  - Dyspnoea [None]
  - Swelling [None]
  - Chest discomfort [None]
  - Weight increased [None]
  - Peripheral swelling [None]
  - Abdominal distension [None]
  - Fluid retention [None]

NARRATIVE: CASE EVENT DATE: 20150310
